FAERS Safety Report 11264591 (Version 3)
Quarter: 2015Q3

REPORT INFORMATION
  Report Type: Spontaneous
  Country: DE (occurrence: DE)
  Receive Date: 20150713
  Receipt Date: 20150724
  Transmission Date: 20151125
  Serious: Yes (Life-Threatening, Hospitalization, Disabling, Other)
  Sender: FDA-Public Use
  Company Number: DE-009507513-1507DEU004726

PATIENT
  Age: 81 Year
  Sex: Female

DRUGS (8)
  1. EUTHYROX [Suspect]
     Active Substance: LEVOTHYROXINE SODIUM
     Indication: THYROIDECTOMY
     Dosage: 100 MICROGRAM, IN THE MORNING
  2. LYRICA [Suspect]
     Active Substance: PREGABALIN
     Indication: POLYNEUROPATHY
     Dosage: 75 MG, IN THE MORNING
  3. JANUVIA [Suspect]
     Active Substance: SITAGLIPTIN PHOSPHATE
     Indication: TYPE 2 DIABETES MELLITUS
     Dosage: UNK
     Route: 048
     Dates: start: 20150202, end: 20150616
  4. TORSEMIDE. [Suspect]
     Active Substance: TORSEMIDE
     Indication: HYPERTENSION
     Dosage: 20 MG, AT NOON
  5. DELIX (RAMIPRIL) [Suspect]
     Active Substance: RAMIPRIL
     Indication: HYPERTENSION
     Dosage: DAILY DOSE 5 MG, FREQUENCY 0,5 IN THE MORNING, 0,5 IN THE EVENING
  6. ASPIRIN. [Suspect]
     Active Substance: ASPIRIN
     Indication: CEREBROVASCULAR ACCIDENT
     Dosage: 100 MG, AT NOON
  7. LANTUS [Suspect]
     Active Substance: INSULIN GLARGINE
     Indication: TYPE 2 DIABETES MELLITUS
     Dosage: ACCORDING TO BLOOD GLUCOSE
  8. APIDRA [Suspect]
     Active Substance: INSULIN GLULISINE
     Indication: TYPE 2 DIABETES MELLITUS
     Dosage: ACCORDING TO BLOOD GLUCOSE

REACTIONS (1)
  - Pancreatic carcinoma metastatic [Not Recovered/Not Resolved]

NARRATIVE: CASE EVENT DATE: 20150616
